FAERS Safety Report 22597136 (Version 1)
Quarter: 2023Q2

REPORT INFORMATION
  Report Type: Spontaneous
  Country: PT (occurrence: PT)
  Receive Date: 20230613
  Receipt Date: 20230613
  Transmission Date: 20230721
  Serious: Yes (Death, Hospitalization)
  Sender: FDA-Public Use
  Company Number: PT-STRIDES ARCOLAB LIMITED-2023SP009374

PATIENT
  Age: 17 Year
  Sex: Female

DRUGS (6)
  1. VANCOMYCIN [Interacting]
     Active Substance: VANCOMYCIN
     Indication: Tuberculosis
     Dosage: UNK (DOSES ADJUSTED)
     Route: 065
  2. PYRAZINAMIDE [Suspect]
     Active Substance: PYRAZINAMIDE
     Indication: Tuberculosis
     Dosage: UNK
     Route: 065
  3. RIFAMPIN [Interacting]
     Active Substance: RIFAMPIN
     Indication: Tuberculosis
     Dosage: UNK (DOSES ADJUSTED)
     Route: 042
  4. AMIKACIN [Interacting]
     Active Substance: AMIKACIN
     Indication: Tuberculosis
     Dosage: UNK (DOSES ADJUSTED)
     Route: 065
  5. ETHAMBUTOL [Suspect]
     Active Substance: ETHAMBUTOL HYDROCHLORIDE
     Indication: Tuberculosis
     Dosage: UNK
  6. ISONIAZID [Suspect]
     Active Substance: ISONIAZID
     Indication: Tuberculosis
     Dosage: UNK
     Route: 042

REACTIONS (4)
  - Death [Fatal]
  - Drug level below therapeutic [Unknown]
  - Drug interaction [Unknown]
  - Off label use [Unknown]
